FAERS Safety Report 6863808-9 (Version None)
Quarter: 2010Q3

REPORT INFORMATION
  Report Type: 
  Country: None (occurrence: None)
  Receive Date: 20100721
  Receipt Date: 20100712
  Transmission Date: 20110219
  Serious: Yes (Death, Hospitalization)
  Sender: FDA-Public Use
  Company Number: GB-WATSON-2010-09575

PATIENT
  Age: 50 Year
  Sex: Female

DRUGS (5)
  1. MIRTAZAPINE [Suspect]
     Indication: PSYCHOTIC DISORDER
     Dosage: UNK
  2. RISPERIDONE [Suspect]
     Indication: PSYCHOTIC DISORDER
     Dosage: UNK
  3. CITALOPRAM HYDROBROMIDE [Suspect]
     Indication: PSYCHOTIC DISORDER
     Dosage: UNK
  4. CLONAZEPAM [Suspect]
     Indication: PSYCHOTIC DISORDER
     Dosage: UNK
  5. PROCYCLIDINE HYDROCHLORIDE 2MG TAB [Suspect]
     Indication: PSYCHOTIC DISORDER
     Dosage: UNK

REACTIONS (5)
  - BRAIN OEDEMA [None]
  - HYPONATRAEMIA [None]
  - INAPPROPRIATE ANTIDIURETIC HORMONE SECRETION [None]
  - POLYDIPSIA [None]
  - RESPIRATORY ARREST [None]
